FAERS Safety Report 7162439-3 (Version None)
Quarter: 2010Q4

REPORT INFORMATION
  Report Type: 
  Country: None (occurrence: None)
  Receive Date: 20101201
  Receipt Date: 20101117
  Transmission Date: 20110411
  Serious: Yes (Death, Life-Threatening, Hospitalization, Disabling, Other)
  Sender: FDA-Public Use
  Company Number: MC201000376

PATIENT
  Age: 80 Year
  Sex: Male
  Weight: 75 kg

DRUGS (8)
  1. ANGIOMAX [Suspect]
     Indication: PRODUCT USED FOR UNKNOWN INDICATION
     Dates: start: 20101022
  2. INTEGRILIN [Suspect]
     Indication: ARTERIAL OCCLUSIVE DISEASE
     Dosage: INTRAVENOUS ; INTRAVENOUS
     Route: 042
     Dates: start: 20101022, end: 20101026
  3. INTEGRILIN [Suspect]
     Indication: ARTERIAL OCCLUSIVE DISEASE
     Dosage: INTRAVENOUS ; INTRAVENOUS
     Route: 042
     Dates: start: 20101103
  4. LOVENOX [Suspect]
     Indication: PRODUCT USED FOR UNKNOWN INDICATION
     Dates: start: 20101022
  5. PLAVIX [Suspect]
     Indication: PRODUCT USED FOR UNKNOWN INDICATION
     Dosage: 300 MG
     Dates: start: 20101022
  6. UNTROPIN () [Suspect]
     Indication: PRODUCT USED FOR UNKNOWN INDICATION
     Dates: start: 20101103
  7. NITROGLYCERIN [Suspect]
     Indication: PRODUCT USED FOR UNKNOWN INDICATION
     Dates: start: 20101022
  8. DARVOCET [Suspect]
     Indication: PRODUCT USED FOR UNKNOWN INDICATION
     Dates: start: 20101103

REACTIONS (6)
  - HAEMORRHAGE INTRACRANIAL [None]
  - HYPERSENSITIVITY [None]
  - HYPOTENSION [None]
  - MYOCARDIAL INFARCTION [None]
  - OVERDOSE [None]
  - PLATELET COUNT DECREASED [None]
